FAERS Safety Report 19397570 (Version 1)
Quarter: 2021Q2

REPORT INFORMATION
  Report Type: Spontaneous
  Country: US (occurrence: US)
  Receive Date: 20210609
  Receipt Date: 20210609
  Transmission Date: 20210717
  Serious: No
  Sender: FDA-Public Use
  Company Number: US-SA-2021SA192220

PATIENT
  Age: 45 Year
  Sex: Female
  Weight: 58.06 kg

DRUGS (1)
  1. AUBAGIO [Suspect]
     Active Substance: TERIFLUNOMIDE
     Dosage: 7 MG, QD

REACTIONS (2)
  - Dyskinesia [Unknown]
  - Myalgia [Unknown]

NARRATIVE: CASE EVENT DATE: 20210209
